FAERS Safety Report 6566840-8 (Version None)
Quarter: 2010Q1

REPORT INFORMATION
  Report Type: 
  Country: None (occurrence: None)
  Receive Date: 20100202
  Receipt Date: 20100125
  Transmission Date: 20100710
  Serious: Yes (Hospitalization)
  Sender: FDA-Public Use
  Company Number: A0842197A

PATIENT
  Sex: Male
  Weight: 85.9 kg

DRUGS (2)
  1. AVANDAMET [Suspect]
     Dosage: 1TAB TWICE PER DAY
     Route: 048
     Dates: start: 20030916, end: 20060503
  2. AVANDIA [Suspect]
     Route: 048
     Dates: start: 20070223, end: 20070508

REACTIONS (5)
  - CARDIAC FAILURE CONGESTIVE [None]
  - CARDIOMYOPATHY [None]
  - CHEST PAIN [None]
  - CORONARY ARTERY DISEASE [None]
  - MYOCARDIAL ISCHAEMIA [None]
